FAERS Safety Report 5351345-2 (Version None)
Quarter: 2007Q2

REPORT INFORMATION
  Report Type: 
  Country: None (occurrence: None)
  Receive Date: 20070608
  Receipt Date: 20070601
  Transmission Date: 20071010
  Serious: Yes (Hospitalization)
  Sender: FDA-Public Use
  Company Number: DE-BOEHRINGER INGELHEIM PHARMACEUTICALS, INC.-2007-BP-07709YA

PATIENT
  Age: 73 Year
  Sex: Male

DRUGS (3)
  1. OMNIC CAPSULE [Suspect]
     Indication: BENIGN PROSTATIC HYPERPLASIA
     Route: 065
  2. ASPIRIN [Concomitant]
  3. RANITIDINE HCL [Concomitant]

REACTIONS (4)
  - DEAFNESS [None]
  - DEAFNESS UNILATERAL [None]
  - NYSTAGMUS [None]
  - VERTIGO [None]
